FAERS Safety Report 9170802 (Version 1)
Quarter: 2013Q1

REPORT INFORMATION
  Report Type: Spontaneous
  Country: DE (occurrence: None)
  Receive Date: 20130312
  Receipt Date: 20130312
  Transmission Date: 20140127
  Serious: Yes (Hospitalization)
  Sender: FDA-Public Use
  Company Number: FK201300752

PATIENT
  Age: 82 Year
  Sex: Male
  Weight: 55.7 kg

DRUGS (1)
  1. GEMCITABINE [Suspect]
     Indication: PANCREATIC CARCINOMA
     Route: 042
     Dates: start: 201211, end: 201301

REACTIONS (1)
  - Pneumonia [None]
